FAERS Safety Report 4840600-8 (Version None)
Quarter: 2005Q4

REPORT INFORMATION
  Report Type: 
  Country: None (occurrence: None)
  Receive Date: 20051129
  Receipt Date: 20051129
  Transmission Date: 20060501
  Serious: Yes (Death)
  Sender: FDA-Public Use
  Company Number: None

PATIENT
  Age: 74 Year
  Sex: Female
  Weight: 55.3388 kg

DRUGS (2)
  1. GEMCITABINE [Suspect]
     Indication: OROPHARYNGEAL CANCER RECURRENT
     Dosage: 100 MG/M2 SEE NOTE
     Dates: start: 20050823, end: 20051109
  2. DOXORUBICIN [Suspect]
     Dosage: 25 MG/M2 SEE NOTE
     Dates: start: 20050823, end: 20051109

REACTIONS (5)
  - CARDIAC DISORDER [None]
  - COUGH [None]
  - MALAISE [None]
  - PNEUMONIA [None]
  - PYREXIA [None]
